FAERS Safety Report 9216172 (Version 1)
Quarter: 2013Q2

REPORT INFORMATION
  Report Type: Spontaneous
  Country: US (occurrence: None)
  Receive Date: 20130403
  Receipt Date: 20130403
  Transmission Date: 20140414
  Serious: Yes (Other)
  Sender: FDA-Public Use
  Company Number: DAV-AE-MTX-13-21

PATIENT
  Age: 67 Year
  Sex: Female

DRUGS (3)
  1. METHOTREXATE [Suspect]
     Indication: ARTHRALGIA
  2. PREDNISOLONE [Concomitant]
  3. ADALIMUMAB [Concomitant]

REACTIONS (1)
  - Mycobacterium chelonae infection [None]
